FAERS Safety Report 12995665 (Version 3)
Quarter: 2017Q1

REPORT INFORMATION
  Report Type: Spontaneous
  Country: JP (occurrence: JP)
  Receive Date: 20161202
  Receipt Date: 20170331
  Transmission Date: 20170428
  Serious: Yes (Death, Life-Threatening, Hospitalization, Other)
  Sender: FDA-Public Use
  Company Number: JP-ELI_LILLY_AND_COMPANY-JP201611009542

PATIENT
  Age: 67 Year
  Sex: Male

DRUGS (2)
  1. PACLITAXEL. [Concomitant]
     Active Substance: PACLITAXEL
     Indication: METASTATIC GASTRIC CANCER
     Dosage: UNK
     Route: 042
     Dates: start: 20160212, end: 20160524
  2. CYRAMZA [Suspect]
     Active Substance: RAMUCIRUMAB
     Indication: METASTATIC GASTRIC CANCER
     Dosage: UNK
     Route: 042
     Dates: start: 20160315, end: 20160524

REACTIONS (5)
  - Jaundice cholestatic [Unknown]
  - Impaired healing [Unknown]
  - Malignant neoplasm progression [Fatal]
  - Post procedural infection [Unknown]
  - Duodenal perforation [Recovering/Resolving]

NARRATIVE: CASE EVENT DATE: 2016
